FAERS Safety Report 4643809-1 (Version None)
Quarter: 2005Q2

REPORT INFORMATION
  Report Type: 
  Country: None (occurrence: None)
  Receive Date: 20050422
  Receipt Date: 20050422
  Transmission Date: 20051028
  Serious: Yes (Other)
  Sender: FDA-Public Use
  Company Number: None

PATIENT
  Age: 62 Year
  Sex: Male
  Weight: 106.1 kg

DRUGS (22)
  1. BUPROPION [Suspect]
  2. ISOSORBIDE DINITRATE [Concomitant]
  3. GEMFIBROZIL [Concomitant]
  4. METOPROLOL TARTRATE [Concomitant]
  5. DILTIAZEM (INWOOD) [Concomitant]
  6. IRBESARTAN [Concomitant]
  7. GLYBURIDE [Concomitant]
  8. SERTRALINE HCL [Concomitant]
  9. ASPIRIN [Concomitant]
  10. CALCIPOTRIENE [Concomitant]
  11. ALPRAZOLAM [Concomitant]
  12. MELOXICAM [Concomitant]
  13. OMEPRAZOLE [Concomitant]
  14. SALICYLIC ACID 2/SULFUR 2% [Concomitant]
  15. ATORVASTATIN CALCIUM [Concomitant]
  16. HYDROCORTISONE [Concomitant]
  17. CLOBETASOL PROPIONATE [Concomitant]
  18. ALBUTEROL [Concomitant]
  19. COAL TAR [Concomitant]
  20. IPATROPIUM BROMIDE [Concomitant]
  21. ACETAMINOPHEN [Concomitant]
  22. METFORMIN HCL [Concomitant]

REACTIONS (1)
  - RASH [None]
